FAERS Safety Report 5212700-4 (Version None)
Quarter: 2007Q1

REPORT INFORMATION
  Report Type: 
  Country: None (occurrence: None)
  Receive Date: 20061115
  Receipt Date: 20060914
  Transmission Date: 20070707
  Serious: Yes (Other)
  Sender: FDA-Public Use
  Company Number: 200611652BWH

PATIENT
  Age: 58 Year
  Sex: Female
  Weight: 68.0396 kg

DRUGS (7)
  1. NEXAVAR [Suspect]
     Indication: RENAL CELL CARCINOMA STAGE UNSPECIFIED
     Dosage: SEE IMAGE
     Route: 048
     Dates: start: 20060311, end: 20060315
  2. NEXAVAR [Suspect]
     Indication: RENAL CELL CARCINOMA STAGE UNSPECIFIED
     Dosage: SEE IMAGE
     Route: 048
     Dates: start: 20060316
  3. CELEBREX [Concomitant]
  4. XANAX [Concomitant]
  5. DIOVAN [Concomitant]
  6. VICODIN [Concomitant]
  7. ZOMETA [Concomitant]

REACTIONS (12)
  - ALOPECIA [None]
  - ARTHRALGIA [None]
  - GLOSSODYNIA [None]
  - HERPES SIMPLEX [None]
  - HYPERTENSION [None]
  - LARYNGITIS [None]
  - NECK PAIN [None]
  - PAIN IN EXTREMITY [None]
  - RASH [None]
  - SWOLLEN TONGUE [None]
  - TONGUE DISORDER [None]
  - VULVOVAGINAL MYCOTIC INFECTION [None]
